FAERS Safety Report 13718013 (Version 5)
Quarter: 2017Q4

REPORT INFORMATION
  Report Type: Spontaneous
  Country: AR (occurrence: AR)
  Receive Date: 20170705
  Receipt Date: 20171101
  Transmission Date: 20180320
  Serious: Yes (Other)
  Sender: FDA-Public Use
  Company Number: AR-PFIZER INC-2017272885

PATIENT
  Age: 78 Year
  Sex: Female

DRUGS (3)
  1. IBRANCE [Suspect]
     Active Substance: PALBOCICLIB
     Dosage: 125 MG, CYCLIC (3/1 SCHEME)
  2. IBRANCE [Suspect]
     Active Substance: PALBOCICLIB
     Indication: BREAST CANCER METASTATIC
     Dosage: 125 MG, CYCLIC (3/1 SCHEME)
     Dates: start: 20170418
  3. IBRANCE [Suspect]
     Active Substance: PALBOCICLIB
     Dosage: 125 MG, CYCLIC (3/1 SCHEME)

REACTIONS (32)
  - Blood pressure decreased [Recovering/Resolving]
  - Lower respiratory tract infection [Recovering/Resolving]
  - Aphonia [Recovering/Resolving]
  - Pyrexia [Recovering/Resolving]
  - Cough [Not Recovered/Not Resolved]
  - Muscular weakness [Recovering/Resolving]
  - Headache [Recovering/Resolving]
  - Rhinorrhoea [Recovering/Resolving]
  - Productive cough [Recovering/Resolving]
  - Dry skin [Recovering/Resolving]
  - Gastrointestinal disorder [Recovering/Resolving]
  - Liver disorder [Recovering/Resolving]
  - Epistaxis [Unknown]
  - Malaise [Recovering/Resolving]
  - Nasopharyngitis [Recovering/Resolving]
  - Dizziness [Recovering/Resolving]
  - Lung disorder [Recovering/Resolving]
  - Skin wrinkling [Recovering/Resolving]
  - Throat irritation [Recovering/Resolving]
  - Influenza [Recovering/Resolving]
  - Syncope [Recovering/Resolving]
  - Condition aggravated [Recovering/Resolving]
  - Diabetes mellitus [Recovering/Resolving]
  - Catarrh [Not Recovered/Not Resolved]
  - Chest pain [Recovering/Resolving]
  - Back pain [Not Recovered/Not Resolved]
  - Decreased appetite [Recovering/Resolving]
  - Bronchitis [Recovering/Resolving]
  - Oropharyngeal pain [Recovering/Resolving]
  - Muscle spasms [Not Recovered/Not Resolved]
  - Decreased immune responsiveness [Recovering/Resolving]
  - Hypogeusia [Recovering/Resolving]

NARRATIVE: CASE EVENT DATE: 20170617
